FAERS Safety Report 21161714 (Version 1)
Quarter: 2022Q3

REPORT INFORMATION
  Report Type: Spontaneous
  Country: US (occurrence: US)
  Receive Date: 20220802
  Receipt Date: 20220802
  Transmission Date: 20221027
  Serious: No
  Sender: FDA-Public Use
  Company Number: US-RVL_Pharmaceuticals-USA-POI1255202200247

PATIENT
  Sex: Female

DRUGS (2)
  1. UPNEEQ [Suspect]
     Active Substance: OXYMETAZOLINE HYDROCHLORIDE
     Indication: Facial paralysis
     Dosage: OD
     Route: 047
     Dates: start: 20220602, end: 20220602
  2. LIDOCAINE HYDROCHLORIDE AND EPINEPHRINE BITARTRATE [Concomitant]
     Active Substance: EPINEPHRINE BITARTRATE\LIDOCAINE HYDROCHLORIDE
     Indication: Local anaesthesia
     Dates: start: 20220602, end: 20220602

REACTIONS (4)
  - Swelling of eyelid [Recovering/Resolving]
  - Eyelid disorder [Recovering/Resolving]
  - Eyelid irritation [Recovering/Resolving]
  - Hordeolum [Recovering/Resolving]

NARRATIVE: CASE EVENT DATE: 20220602
